FAERS Safety Report 5664706-9 (Version None)
Quarter: 2008Q1

REPORT INFORMATION
  Report Type: 
  Country: None (occurrence: None)
  Receive Date: 20080314
  Receipt Date: 20080307
  Transmission Date: 20080703
  Serious: Yes (Death, Hospitalization)
  Sender: FDA-Public Use
  Company Number: US-BRISTOL-MYERS SQUIBB COMPANY-14023097

PATIENT
  Age: 59 Year
  Sex: Male
  Weight: 85 kg

DRUGS (15)
  1. IXEMPRA [Suspect]
     Indication: PROSTATE CANCER
     Dosage: FREQUENCY: 3 HRS ON DAY 1.
     Route: 042
     Dates: start: 20071108, end: 20071108
  2. MITOXANTRONE HCL [Suspect]
     Indication: PROSTATE CANCER
     Dosage: FREQUENCY: 30MINUTES ON DAY 1.
     Route: 042
     Dates: start: 20071108, end: 20071108
  3. PREDNISONE [Suspect]
     Indication: PROSTATE CANCER
     Dosage: ADMINISTERED ON DAYS 1 TO 21.
     Route: 048
     Dates: start: 20071108, end: 20071115
  4. NEULASTA [Suspect]
     Indication: PROSTATE CANCER
     Dosage: ADMINISTERED ON DAY 2.
     Route: 058
     Dates: start: 20071109, end: 20071109
  5. VERAPAMIL [Concomitant]
  6. ZOCOR [Concomitant]
  7. PIROXICAM [Concomitant]
  8. CELEBREX [Concomitant]
  9. DEXAMETHASONE TAB [Concomitant]
  10. LACTULOSE [Concomitant]
  11. ZESTORETIC [Concomitant]
  12. MAGNESIUM SUPPLEMENT [Concomitant]
  13. PROTONIX [Concomitant]
  14. REGLAN [Concomitant]
  15. METHADONE [Concomitant]

REACTIONS (11)
  - ACUTE RESPIRATORY DISTRESS SYNDROME [None]
  - ANAEMIA [None]
  - CARDIO-RESPIRATORY ARREST [None]
  - FEBRILE NEUTROPENIA [None]
  - HYPOCALCAEMIA [None]
  - HYPOKALAEMIA [None]
  - INFECTION [None]
  - PLATELET COUNT DECREASED [None]
  - PROSTATE INFECTION [None]
  - RENAL FAILURE [None]
  - RENAL TUBULAR NECROSIS [None]
